FAERS Safety Report 5221549-8 (Version None)
Quarter: 2007Q1

REPORT INFORMATION
  Report Type: 
  Country: None (occurrence: None)
  Receive Date: 20070127
  Receipt Date: 20070116
  Transmission Date: 20070707
  Serious: Yes (Hospitalization)
  Sender: FDA-Public Use
  Company Number: PL-ABBOTT-07P-129-0355813-00

PATIENT
  Age: 17 Year
  Sex: Male
  Weight: 50 kg

DRUGS (1)
  1. KLACID I.V. [Suspect]
     Indication: DRUG USE FOR UNKNOWN INDICATION
     Route: 042
     Dates: start: 20070103, end: 20070105

REACTIONS (1)
  - INFUSION SITE PAIN [None]
